FAERS Safety Report 17460563 (Version 2)
Quarter: 2020Q1

REPORT INFORMATION
  Report Type: Spontaneous
  Country: US (occurrence: US)
  Receive Date: 20200226
  Receipt Date: 20200331
  Transmission Date: 20200409
  Serious: No
  Sender: FDA-Public Use
  Company Number: US-PFIZER INC-2020083258

PATIENT
  Age: 49 Year
  Sex: Female

DRUGS (1)
  1. XELJANZ XR [Suspect]
     Active Substance: TOFACITINIB CITRATE
     Indication: RHEUMATOID ARTHRITIS
     Dosage: 11 MG, DAILY
     Route: 048
     Dates: start: 202002

REACTIONS (7)
  - Memory impairment [Unknown]
  - Drug ineffective [Unknown]
  - Headache [Unknown]
  - Upper respiratory tract infection [Unknown]
  - Depressed mood [Unknown]
  - Nausea [Unknown]
  - Product dose omission [Unknown]
